FAERS Safety Report 16372375 (Version 1)
Quarter: 2019Q2

REPORT INFORMATION
  Report Type: Report from Study
  Country: US (occurrence: US)
  Receive Date: 20190530
  Receipt Date: 20190530
  Transmission Date: 20190711
  Serious: Yes (Hospitalization, Other)
  Sender: FDA-Public Use
  Company Number: US-GILEAD-2019-0405492

PATIENT
  Age: 15 Year
  Sex: Male
  Weight: 110 kg

DRUGS (17)
  1. POTASSIUM [Concomitant]
     Active Substance: POTASSIUM
  2. BUMETANIDE. [Concomitant]
     Active Substance: BUMETANIDE
     Indication: CARDIAC FAILURE
  3. OXYGEN. [Concomitant]
     Active Substance: OXYGEN
     Indication: HYPOXIA
  4. BUDESONIDE. [Concomitant]
     Active Substance: BUDESONIDE
     Indication: PROTEIN-LOSING GASTROENTEROPATHY
  5. BUMETANIDE. [Concomitant]
     Active Substance: BUMETANIDE
     Indication: OEDEMA
  6. PRILOSEC [Concomitant]
     Active Substance: OMEPRAZOLE MAGNESIUM
     Indication: GASTROOESOPHAGEAL REFLUX DISEASE
  7. TADALAFIL. [Concomitant]
     Active Substance: TADALAFIL
     Indication: PULMONARY HYPERTENSION
  8. CENTRUM A TO ZINC [Concomitant]
     Active Substance: MINERALS\VITAMINS
  9. ZYRTEC [Concomitant]
     Active Substance: CETIRIZINE HYDROCHLORIDE
  10. XOPENEX [Concomitant]
     Active Substance: LEVALBUTEROL HYDROCHLORIDE
     Indication: RESTRICTIVE PULMONARY DISEASE
  11. WARFARIN [Concomitant]
     Active Substance: WARFARIN
     Indication: THROMBOSIS
  12. FLOVENT HFA [Concomitant]
     Active Substance: FLUTICASONE PROPIONATE
     Indication: RESTRICTIVE PULMONARY DISEASE
  13. AMBRISENTAN [Suspect]
     Active Substance: AMBRISENTAN
     Indication: PULMONARY ARTERIAL HYPERTENSION
     Dosage: 5 MG, QD
     Route: 048
     Dates: start: 20180514
  14. CALCIUM WITH VITAMIN D3 [CALCIUM;COLECALCIFEROL] [Concomitant]
  15. SINGULAIR [Concomitant]
     Active Substance: MONTELUKAST SODIUM
     Indication: RESTRICTIVE PULMONARY DISEASE
  16. ZINC SULFATE [Concomitant]
     Active Substance: ZINC SULFATE\ZINC SULFATE ANHYDROUS
  17. ALDACTONE [Concomitant]
     Active Substance: SPIRONOLACTONE
     Indication: OEDEMA

REACTIONS (9)
  - Asthenia [Unknown]
  - Fatigue [Unknown]
  - Weight increased [Unknown]
  - Peripheral swelling [Unknown]
  - Cough [Unknown]
  - Haemoptysis [Recovered/Resolved]
  - Acute kidney injury [Unknown]
  - Off label use [Not Recovered/Not Resolved]
  - Dyspnoea [Unknown]

NARRATIVE: CASE EVENT DATE: 20180514
